FAERS Safety Report 4704420-7 (Version None)
Quarter: 2005Q2

REPORT INFORMATION
  Report Type: 
  Country: None (occurrence: None)
  Receive Date: 20050624
  Receipt Date: 20050624
  Transmission Date: 20051028
  Serious: No
  Sender: FDA-Public Use
  Company Number: None

PATIENT
  Age: 11 Year
  Sex: Male

DRUGS (1)
  1. PRED FORTE [Suspect]
     Indication: IRITIS
     Dosage: Q 2 H

REACTIONS (1)
  - PHARMACEUTICAL PRODUCT COMPLAINT [None]
